FAERS Safety Report 6378481-6 (Version None)
Quarter: 2009Q3

REPORT INFORMATION
  Report Type: 
  Country: None (occurrence: None)
  Receive Date: 20090928
  Receipt Date: 20090916
  Transmission Date: 20100115
  Serious: Yes (Hospitalization)
  Sender: FDA-Public Use
  Company Number: US-BIOGENIDEC-163547

PATIENT
  Age: 44 Year
  Sex: Female
  Weight: 69 kg

DRUGS (9)
  1. AVONEX [Suspect]
     Indication: MULTIPLE SCLEROSIS
     Route: 030
     Dates: start: 19970101, end: 20010901
  2. AVONEX [Suspect]
     Route: 030
     Dates: end: 20071201
  3. PREVACID [Concomitant]
     Indication: GASTROOESOPHAGEAL REFLUX DISEASE
     Dates: start: 19950101, end: 19980101
  4. WELLBUTRIN [Concomitant]
     Indication: EX-TOBACCO USER
     Dates: start: 20010101
  5. WELLBUTRIN [Concomitant]
     Indication: DEPRESSION
     Dates: start: 20010101
  6. VITAMINS [Concomitant]
     Indication: ROUTINE HEALTH MAINTENANCE
  7. COPAXONE [Concomitant]
     Indication: MULTIPLE SCLEROSIS
     Dates: start: 20010901
  8. DEPAKOTE [Concomitant]
     Indication: MANIA
  9. ZYPREXA [Concomitant]
     Indication: MANIA
     Dates: start: 19970101, end: 19970101

REACTIONS (7)
  - BACK PAIN [None]
  - BREAST CANCER IN SITU [None]
  - GASTROOESOPHAGEAL REFLUX DISEASE [None]
  - INSOMNIA [None]
  - MITRAL VALVE INCOMPETENCE [None]
  - MULTIPLE SCLEROSIS RELAPSE [None]
  - MUSCLE SPASMS [None]
